FAERS Safety Report 13073146 (Version 9)
Quarter: 2018Q1

REPORT INFORMATION
  Report Type: Report from Study
  Country: JP (occurrence: JP)
  Receive Date: 20161229
  Receipt Date: 20180116
  Transmission Date: 20180508
  Serious: Yes (Death, Hospitalization, Other)
  Sender: FDA-Public Use
  Company Number: JP-BRISTOL-MYERS SQUIBB COMPANY-BMS-2016-111355

PATIENT
  Age: 76 Year
  Sex: Female
  Weight: 53 kg

DRUGS (4)
  1. OPDIVO [Suspect]
     Active Substance: NIVOLUMAB
     Indication: PRODUCT USED FOR UNKNOWN INDICATION
     Dosage: 3 MG/KG, Q2WK
     Route: 041
     Dates: start: 20160325, end: 20160325
  2. IPILIMUMAB [Suspect]
     Active Substance: IPILIMUMAB
     Indication: MALIGNANT MELANOMA STAGE IV
     Dosage: 3 MG/KG, UNK
     Route: 041
     Dates: start: 20160603, end: 20160624
  3. OPDIVO [Suspect]
     Active Substance: NIVOLUMAB
     Indication: PRODUCT USED FOR UNKNOWN INDICATION
     Dosage: 3 MG/KG, QD
     Route: 041
     Dates: start: 20160415, end: 20160415
  4. OPDIVO [Suspect]
     Active Substance: NIVOLUMAB
     Indication: MALIGNANT MELANOMA STAGE IV
     Dosage: 3 MG/KG, Q2WK
     Route: 041
     Dates: start: 20160311, end: 20160311

REACTIONS (5)
  - Malignant neoplasm progression [Fatal]
  - Oedema peripheral [Not Recovered/Not Resolved]
  - Subdural haematoma [Not Recovered/Not Resolved]
  - Thrombocytopenic purpura [Not Recovered/Not Resolved]
  - Fall [Not Recovered/Not Resolved]

NARRATIVE: CASE EVENT DATE: 20160326
